FAERS Safety Report 7198847-4 (Version None)
Quarter: 2010Q4

REPORT INFORMATION
  Report Type: 
  Country: None (occurrence: None)
  Receive Date: 20101227
  Receipt Date: 20101214
  Transmission Date: 20110411
  Serious: Yes (Life-Threatening, Hospitalization, Other)
  Sender: FDA-Public Use
  Company Number: US-B.I. PHARMACEUTICALS,INC./RIDGEFIELD-2010-DE-06938GD

PATIENT
  Age: 18 Year
  Sex: Male

DRUGS (6)
  1. ACETAMINOPHEN [Suspect]
  2. CLONIDINE [Suspect]
     Indication: DEPRESSION
  3. SEROQUEL [Suspect]
     Indication: DEPRESSION
  4. CELEXA [Suspect]
     Indication: DEPRESSION
  5. ABILIFY [Suspect]
     Indication: DEPRESSION
  6. KLONOPIN [Suspect]
     Indication: DEPRESSION

REACTIONS (11)
  - ACUTE HEPATIC FAILURE [None]
  - COAGULOPATHY [None]
  - COMA [None]
  - ENCEPHALOPATHY [None]
  - FATIGUE [None]
  - HYPERAMMONAEMIA [None]
  - INTRACRANIAL PRESSURE INCREASED [None]
  - LEUKOENCEPHALOPATHY [None]
  - NAUSEA [None]
  - PAPILLOEDEMA [None]
  - VOMITING [None]
